FAERS Safety Report 13344835 (Version 2)
Quarter: 2017Q2

REPORT INFORMATION
  Report Type: Report from Study
  Country: SV (occurrence: SV)
  Receive Date: 20170317
  Receipt Date: 20170404
  Transmission Date: 20170830
  Serious: Yes (Death, Hospitalization)
  Sender: FDA-Public Use
  Company Number: PHHY2017SV040778

PATIENT
  Age: 60 Year
  Sex: Female

DRUGS (1)
  1. GLIVEC [Suspect]
     Active Substance: IMATINIB MESYLATE
     Indication: CHRONIC MYELOID LEUKAEMIA
     Dosage: 400 MG, QD
     Route: 065
     Dates: start: 20150506

REACTIONS (14)
  - Ascites [Unknown]
  - Haemorrhage [Fatal]
  - Platelet count abnormal [Unknown]
  - Hydronephrosis [Unknown]
  - Blood sodium abnormal [Unknown]
  - Peritoneal fluid analysis abnormal [Unknown]
  - White blood cell count abnormal [Unknown]
  - Blood creatinine abnormal [Unknown]
  - Blood phosphorus abnormal [Unknown]
  - Blood glucose increased [Unknown]
  - Fluid overload [Unknown]
  - Cervix carcinoma recurrent [Fatal]
  - Chronic hepatitis [Unknown]
  - Peritonitis [Fatal]

NARRATIVE: CASE EVENT DATE: 20170116
